FAERS Safety Report 4437994-4 (Version None)
Quarter: 2004Q3

REPORT INFORMATION
  Report Type: 
  Country: None (occurrence: None)
  Receive Date: 20040831
  Receipt Date: 20040427
  Transmission Date: 20050211
  Serious: Yes (Life-Threatening, Other)
  Sender: FDA-Public Use
  Company Number: US-GLAXOSMITHKLINE-A0508732A

PATIENT
  Age: 29 Year
  Sex: Male
  Weight: 118.2 kg

DRUGS (2)
  1. WELLBUTRIN [Suspect]
     Indication: DEPRESSION
     Route: 048
     Dates: start: 20040323, end: 20040413
  2. UNKNOWN MEDICATION [Concomitant]

REACTIONS (3)
  - DYSPNOEA [None]
  - HYPERSENSITIVITY [None]
  - THROAT TIGHTNESS [None]
